FAERS Safety Report 10098623 (Version 2)
Quarter: 2014Q2

REPORT INFORMATION
  Report Type: Spontaneous
  Country: JP (occurrence: JP)
  Receive Date: 20140423
  Receipt Date: 20140429
  Transmission Date: 20141212
  Serious: Yes (Other)
  Sender: FDA-Public Use
  Company Number: JP-PFIZER INC-2014109431

PATIENT
  Age: 5 Decade
  Sex: Male

DRUGS (1)
  1. NORVASC [Suspect]
     Dosage: 5 MG, DAILY
     Route: 048

REACTIONS (1)
  - Colitis ischaemic [Unknown]
